FAERS Safety Report 14946827 (Version 1)
Quarter: 2018Q2

REPORT INFORMATION
  Report Type: Report from Study
  Country: CN (occurrence: CN)
  Receive Date: 20180529
  Receipt Date: 20180529
  Transmission Date: 20180711
  Serious: Yes (Death)
  Sender: FDA-Public Use
  Company Number: CN-PFIZER INC-2018214739

PATIENT
  Age: 7 Year
  Sex: Female

DRUGS (8)
  1. STERILE WATER [Concomitant]
     Active Substance: WATER
     Indication: ACUTE LYMPHOCYTIC LEUKAEMIA
     Dosage: 2 ML, UNK (20 INTRATHECAL INJECTIONS)
     Route: 037
  2. METHOTREXATE. [Concomitant]
     Active Substance: METHOTREXATE
     Indication: ACUTE LYMPHOCYTIC LEUKAEMIA
     Dosage: 12.5 MG, UNK (20 INTRATHECAL INJECTIONS)
     Route: 037
  3. ARA-C [Concomitant]
     Active Substance: CYTARABINE
     Indication: ACUTE LYMPHOCYTIC LEUKAEMIA
     Dosage: 27 MG, UNK (20 INTRATHECAL INJECTIONS)
     Route: 037
  4. METHYLPREDNISOLONE. [Suspect]
     Active Substance: METHYLPREDNISOLONE
     Indication: PARAPLEGIA
     Dosage: 900 MG, UNK
  5. DEXAMETHASONE. [Suspect]
     Active Substance: DEXAMETHASONE
     Indication: ACUTE LYMPHOCYTIC LEUKAEMIA
     Dosage: 5 MG, UNK
     Route: 037
  6. METHOTREXATE. [Concomitant]
     Active Substance: METHOTREXATE
     Dosage: UNK
     Route: 042
  7. VINDESINE [Concomitant]
     Active Substance: VINDESINE
     Indication: ACUTE LYMPHOCYTIC LEUKAEMIA
     Dosage: UNK (20 INTRATHECAL INJECTIONS)
     Route: 042
  8. DEXAMETHASONE. [Suspect]
     Active Substance: DEXAMETHASONE
     Indication: PARAPLEGIA
     Dosage: 4.5 MG, UNK

REACTIONS (1)
  - Drug ineffective [Fatal]
